FAERS Safety Report 4726578-6 (Version None)
Quarter: 2005Q3

REPORT INFORMATION
  Report Type: 
  Country: None (occurrence: None)
  Receive Date: 20050727
  Receipt Date: 20050309
  Transmission Date: 20060218
  Serious: Yes (Hospitalization, Other)
  Sender: FDA-Public Use
  Company Number: US-MERCK-0503USA02208

PATIENT
  Age: 67 Year
  Sex: Female
  Weight: 77 kg

DRUGS (23)
  1. VIOXX [Suspect]
     Indication: ANALGESIC EFFECT
     Route: 048
     Dates: start: 20011107, end: 20030101
  2. ASPIRIN [Concomitant]
     Route: 065
  3. FOSAMAX [Concomitant]
     Route: 048
  4. PREMPRO [Concomitant]
     Route: 065
  5. COMBIVENT [Concomitant]
     Route: 055
  6. FUROSEMIDE [Concomitant]
     Route: 065
  7. ACIPHEX [Concomitant]
     Route: 065
  8. AVAPRO [Concomitant]
     Route: 065
  9. ACETAMINOPHEN AND CODEINE [Concomitant]
     Route: 065
  10. IBUPROFEN [Concomitant]
     Route: 065
  11. ENDOCET [Concomitant]
     Route: 065
  12. HYDROCODONE BITARTRATE [Concomitant]
     Route: 065
  13. OXYCONTIN [Concomitant]
     Route: 065
  14. HYDROCHLOROTHIAZIDE [Concomitant]
     Route: 048
  15. DICYCLOMINE HYDROCHLORIDE [Concomitant]
     Route: 065
  16. ZITHROMAX [Concomitant]
     Route: 065
  17. NEURONTIN [Concomitant]
     Route: 065
  18. METOCLOPRAMIDE [Concomitant]
     Route: 065
  19. LEVAQUIN [Concomitant]
     Route: 065
  20. ALPRAZOLAM [Concomitant]
     Route: 065
  21. BENZONATATE [Concomitant]
     Route: 065
  22. GUAIFENEX LA [Concomitant]
     Route: 065
  23. ATUSS MS [Concomitant]
     Route: 065

REACTIONS (3)
  - CARDIAC DISORDER [None]
  - CEREBROVASCULAR ACCIDENT [None]
  - PLEURAL EFFUSION [None]
